FAERS Safety Report 14045066 (Version 3)
Quarter: 2017Q4

REPORT INFORMATION
  Report Type: Spontaneous
  Country: JP (occurrence: JP)
  Receive Date: 20171005
  Receipt Date: 20171112
  Transmission Date: 20180321
  Serious: Yes (Other)
  Sender: FDA-Public Use
  Company Number: JP-CONCORDIA PHARMACEUTICALS INC.-E2B_00008407

PATIENT
  Age: 68 Year
  Sex: Male

DRUGS (3)
  1. PREDNISOLONE. [Suspect]
     Active Substance: PREDNISOLONE
     Indication: ORGANISING PNEUMONIA
     Route: 048
  2. METHYLPREDNISOLONE. [Suspect]
     Active Substance: METHYLPREDNISOLONE
     Indication: ORGANISING PNEUMONIA
     Dosage: HIGH DOSE
     Route: 042
  3. INFLIXIMAB [Concomitant]
     Active Substance: INFLIXIMAB
     Dosage: 2 SHOTS OF INFLIXIMAB  AT A DOSE OF 5 MG/KG

REACTIONS (1)
  - Colitis [Recovered/Resolved]
